FAERS Safety Report 8671552 (Version 2)
Quarter: 2012Q4

REPORT INFORMATION
  Report Type: Report from Study
  Country: US (occurrence: US)
  Receive Date: 20120718
  Receipt Date: 20120904
  Transmission Date: 20130627
  Serious: Yes (Death, Hospitalization)
  Sender: FDA-Public Use
  Company Number: US-CELGENEUS-163-C5013-12061011

PATIENT
  Age: 80 Year
  Sex: Male
  Weight: 85.81 kg

DRUGS (5)
  1. CC-5013 [Suspect]
     Indication: ACUTE MYELOID LEUKEMIA
     Dosage: 50 Milligram
     Route: 048
     Dates: start: 20120503, end: 20120530
  2. CC-5013 [Suspect]
     Dosage: 50 Milligram
     Route: 048
     Dates: start: 20120531, end: 20120622
  3. PLATELETS [Concomitant]
     Indication: THROMBOCYTOPENIA
     Route: 041
  4. ALLOPURINOL [Concomitant]
     Indication: HYPERURICEMIA
     Route: 065
     Dates: start: 20120626
  5. FLUIDS [Concomitant]
     Indication: HYPERURICEMIA
     Route: 041
     Dates: start: 20120626

REACTIONS (2)
  - Acute myeloid leukaemia [Fatal]
  - Pneumonia [Not Recovered/Not Resolved]
